FAERS Safety Report 4377679-6 (Version None)
Quarter: 2004Q2

REPORT INFORMATION
  Report Type: 
  Country: None (occurrence: None)
  Receive Date: 20040608
  Receipt Date: 20040527
  Transmission Date: 20050107
  Serious: Yes (Death, Hospitalization)
  Sender: FDA-Public Use
  Company Number: 2004216017CH

PATIENT
  Age: 83 Year
  Sex: Male
  Weight: 98 kg

DRUGS (3)
  1. FRAGMIN [Suspect]
     Indication: THROMBOSIS PROPHYLAXIS
     Dosage: 15000 IU, QD, SUBCUTANEOUS
     Route: 058
  2. ASPIRIN [Suspect]
     Indication: THROMBOSIS PROPHYLAXIS
     Dosage: 100 MG, QD, ORAL
     Route: 048
  3. PREDNISONE [Concomitant]

REACTIONS (1)
  - INJECTION SITE HAEMORRHAGE [None]
